FAERS Safety Report 7155050 (Version 3)
Quarter: 2012Q4

REPORT INFORMATION
  Report Type: Spontaneous
  Country: US (occurrence: None)
  Receive Date: 20090923
  Receipt Date: 20121123
  Transmission Date: 20130627
  Serious: Yes (Hospitalization)
  Sender: FDA-Public Use
  Company Number: 20090909CINRY1120

PATIENT
  Age: 54 Year
  Sex: Female
  Weight: 95.26 kg

DRUGS (14)
  1. CINRYZE [Suspect]
     Indication: PROPHYLAXIS
     Dosage: 1000 UNIT, 2 IN 1 WK, INTRAVENOUS
     Route: 042
     Dates: start: 200903
  2. CINRYZE [Suspect]
     Indication: HEREDITARY ANGIOEDEMA
     Route: 042
     Dates: start: 2008
  3. CINRYZE [Suspect]
     Indication: PROPHYLAXIS
     Route: 042
     Dates: start: 2008
  4. ASPIRIN [Concomitant]
  5. HUMULIN LANTUS (INSULIN HUMAN) [Concomitant]
  6. BYAETTE (DRUG USED IN DIABETES) [Concomitant]
  7. OSTEO-BI-FLEX (CHONDROITIN SODIUM SULFATE W/GLUCOSAMINE HCL) [Concomitant]
  8. SYNTHROID [Concomitant]
  9. BENICAR (OLOMESARTAN MEDOXOMIL) [Concomitant]
  10. SIMVASTATIN [Concomitant]
  11. PRILOSEC [Concomitant]
  12. ARIMAX [Concomitant]
  13. ACTINAL (CYPROHEPTADINE HYDROCHLORIDE) [Concomitant]
  14. CINRYZE [Suspect]
     Indication: HEREDITARY ANGIOEDEMA
     Dosage: 1000 UNIT, 2 IN 1 WK, INTRAVENOUS
     Route: 042
     Dates: start: 200903

REACTIONS (8)
  - HEREDITARY ANGIOEDEMA [None]
  - ESCHERICHIA BACTERAEMIA [None]
  - SELF-MEDICATION [None]
  - CHILLS [None]
  - BACK PAIN [None]
  - CONFUSIONAL STATE [None]
  - OEDEMA PERIPHERAL [None]
  - CULTURE URINE POSITIVE [None]
